FAERS Safety Report 7051341-3 (Version None)
Quarter: 2010Q4

REPORT INFORMATION
  Report Type: 
  Country: None (occurrence: None)
  Receive Date: 20101018
  Receipt Date: 20101018
  Transmission Date: 20110411
  Serious: Yes (Other)
  Sender: FDA-Public Use
  Company Number: None

PATIENT
  Age: 16 Year
  Sex: Female
  Weight: 54.4316 kg

DRUGS (2)
  1. NITROFURANTOIN MONOHYDRATE/MACROCRYSTALS [Suspect]
     Indication: KIDNEY INFECTION
     Dosage: 1 CAP 2X DAILY MOUTH
     Route: 048
     Dates: start: 20100925
  2. NITROFURANTOIN MONOHYDRATE/MACROCRYSTALS [Suspect]
     Indication: KIDNEY INFECTION
     Dosage: 1 CAP 2X DAILY MOUTH
     Route: 048
     Dates: start: 20100927

REACTIONS (3)
  - ACTIVITIES OF DAILY LIVING IMPAIRED [None]
  - CRYING [None]
  - DEPRESSION [None]
